FAERS Safety Report 4305476-6 (Version None)
Quarter: 2004Q1

REPORT INFORMATION
  Report Type: 
  Country: None (occurrence: None)
  Receive Date: 20040226
  Receipt Date: 20030811
  Transmission Date: 20041129
  Serious: No
  Sender: FDA-Public Use
  Company Number: US-BRISTOL-MYERS SQUIBB COMPANY-12352589

PATIENT
  Age: 46 Year
  Sex: Female
  Weight: 96 kg

DRUGS (5)
  1. ABILIFY [Suspect]
     Indication: SCHIZOAFFECTIVE DISORDER
     Dosage: TAKEN FOR APPROX 1 AND 1/2 MONTHS.  PHYSICIAN DISCONTINUED, BUT CONSUMER STILL TAKES ^AS NEEDED^.
  2. DEPAKOTE [Concomitant]
  3. PROZAC [Concomitant]
  4. KLONOPIN [Concomitant]
  5. IBUPROFEN [Concomitant]

REACTIONS (1)
  - FURUNCLE [None]
